FAERS Safety Report 5419596-6 (Version None)
Quarter: 2007Q3

REPORT INFORMATION
  Report Type: 
  Country: None (occurrence: None)
  Receive Date: 20070816
  Receipt Date: 20070816
  Transmission Date: 20080115
  Serious: Yes (Hospitalization)
  Sender: FDA-Public Use
  Company Number: None

PATIENT
  Sex: Female
  Weight: 43.6 kg

DRUGS (3)
  1. FLUOROURACIL [Suspect]
     Dosage: 4840 MG
  2. CISPLATIN [Suspect]
     Dosage: 109 MG
  3. ERBITUX [Suspect]
     Dosage: 365 MG

REACTIONS (5)
  - BLOOD POTASSIUM DECREASED [None]
  - CLOSTRIDIUM DIFFICILE COLITIS [None]
  - HYPOTENSION [None]
  - HYPOVOLAEMIA [None]
  - SINUS ARRHYTHMIA [None]
